FAERS Safety Report 9170671 (Version 1)
Quarter: 2013Q1

REPORT INFORMATION
  Report Type: Spontaneous
  Country: US (occurrence: None)
  Receive Date: 20130308
  Receipt Date: 20130308
  Transmission Date: 20140127
  Serious: Yes (Hospitalization, Disabling)
  Sender: FDA-Public Use
  Company Number: SYM-2013-01271

PATIENT
  Age: 46 Year
  Sex: Female

DRUGS (4)
  1. XENAZINE (TETRABENAZINE) (TABLETS) (TETRABENAZINE) [Suspect]
     Indication: HUNTINGTON^S DISEASE
     Route: 048
     Dates: start: 20121116
  2. KLONOPIN [Concomitant]
  3. AMBIEN (ZOPLIDEM TARTRATE) [Concomitant]
  4. XYREM (OXYBATE SODIUM) (OXYBATE SODIUM) [Concomitant]

REACTIONS (1)
  - Depression [None]
